FAERS Safety Report 24264235 (Version 2)
Quarter: 2024Q3

REPORT INFORMATION
  Report Type: Spontaneous
  Country: JP (occurrence: JP)
  Receive Date: 20240829
  Receipt Date: 20240902
  Transmission Date: 20241017
  Serious: Yes (Other)
  Sender: MERCK
  Company Number: JP-009507513-2408JPN007968

PATIENT

DRUGS (1)
  1. TEMOZOLOMIDE [Suspect]
     Active Substance: TEMOZOLOMIDE
     Dosage: 75 MILLIGRAM/SQ. METER
     Route: 048
     Dates: start: 2024

REACTIONS (1)
  - Brain oedema [Unknown]

NARRATIVE: CASE EVENT DATE: 20240101
